FAERS Safety Report 5898629-7 (Version None)
Quarter: 2008Q3

REPORT INFORMATION
  Report Type: 
  Country: None (occurrence: None)
  Receive Date: 20080925
  Receipt Date: 20080304
  Transmission Date: 20090109
  Serious: No
  Sender: FDA-Public Use
  Company Number: A0713296A

PATIENT
  Sex: Female

DRUGS (2)
  1. WELLBUTRIN XL [Suspect]
     Indication: DEPRESSION
     Dosage: 300MG PER DAY
     Route: 048
  2. MULTIPLE MEDICATIONS [Concomitant]

REACTIONS (2)
  - PRURITUS [None]
  - URTICARIA [None]
